FAERS Safety Report 12755902 (Version 1)
Quarter: 2016Q3

REPORT INFORMATION
  Report Type: Spontaneous
  Country: CA (occurrence: CA)
  Receive Date: 20160916
  Receipt Date: 20160916
  Transmission Date: 20161109
  Serious: Yes (Other)
  Sender: FDA-Public Use
  Company Number: CA-UNITED THERAPEUTICS-UNT-2016-014171

PATIENT
  Age: 16 Year
  Sex: Male

DRUGS (1)
  1. REMODULIN [Suspect]
     Active Substance: TREPROSTINIL
     Indication: PULMONARY ARTERIAL HYPERTENSION
     Dosage: 165 ?G/KG, AT A RATE OF 0.042 ML/HR, CONTINUING
     Route: 058
     Dates: start: 20140903

REACTIONS (8)
  - Dilatation atrial [Not Recovered/Not Resolved]
  - Pain in jaw [Not Recovered/Not Resolved]
  - Visual impairment [Not Recovered/Not Resolved]
  - Blood potassium decreased [Not Recovered/Not Resolved]
  - Diarrhoea [Not Recovered/Not Resolved]
  - N-terminal prohormone brain natriuretic peptide increased [Not Recovered/Not Resolved]
  - Migraine [Unknown]
  - Walking distance test abnormal [Not Recovered/Not Resolved]

NARRATIVE: CASE EVENT DATE: 201609
